FAERS Safety Report 26141011 (Version 2)
Quarter: 2025Q4

REPORT INFORMATION
  Report Type: Spontaneous
  Country: US (occurrence: US)
  Receive Date: 20251210
  Receipt Date: 20251223
  Transmission Date: 20260118
  Serious: Yes (Life-Threatening, Hospitalization, Other)
  Sender: PFIZER
  Company Number: US-PFIZER INC-PV202500143680

PATIENT
  Age: 67 Year
  Sex: Female

DRUGS (4)
  1. MEROPENEM [Suspect]
     Active Substance: MEROPENEM
     Indication: Escherichia infection
     Dosage: UNK
  2. MEROPENEM [Suspect]
     Active Substance: MEROPENEM
     Indication: Pseudomonas infection
  3. APIXABAN [Concomitant]
     Active Substance: APIXABAN
     Indication: Jugular vein thrombosis
     Dosage: UNK
  4. IPILIMUMAB/NIVOLUMAB [Concomitant]
     Indication: Thyroid cancer metastatic
     Dosage: UNK

REACTIONS (1)
  - Drug resistance [Unknown]
